FAERS Safety Report 5293992-2 (Version None)
Quarter: 2007Q2

REPORT INFORMATION
  Report Type: 
  Country: None (occurrence: None)
  Receive Date: 20070405
  Receipt Date: 20070313
  Transmission Date: 20071010
  Serious: Yes (Other)
  Sender: FDA-Public Use
  Company Number: 070302976

PATIENT
  Age: 80 Year
  Sex: Female

DRUGS (3)
  1. DELSYM [Suspect]
     Indication: COUGH
     Dosage: 2TSP, ONCE, ORAL
     Route: 048
     Dates: start: 20070312, end: 20070312
  2. LOTREL (UNK) [Concomitant]
  3. ZOCOR [Concomitant]

REACTIONS (5)
  - BLOOD PRESSURE INCREASED [None]
  - BURNING SENSATION [None]
  - DYSARTHRIA [None]
  - DYSPNOEA [None]
  - PHARYNGEAL OEDEMA [None]
